FAERS Safety Report 24928705 (Version 2)
Quarter: 2025Q1

REPORT INFORMATION
  Report Type: Spontaneous
  Country: BG (occurrence: BG)
  Receive Date: 20250205
  Receipt Date: 20250303
  Transmission Date: 20250408
  Serious: Yes (Other)
  Sender: SANOFI AVENTIS
  Company Number: BG-ASTELLAS-2025-AER-006181

PATIENT
  Age: 88 Year
  Sex: Male

DRUGS (3)
  1. TAMSULOSIN HYDROCHLORIDE [Suspect]
     Active Substance: TAMSULOSIN HYDROCHLORIDE
     Indication: Benign prostatic hyperplasia
     Dosage: 0.4 MG, QD (ONCE DAILY IN THE EVENING FOR THE PAST 7-8 YEARS)
     Route: 065
  2. TELMISARTAN [Suspect]
     Active Substance: TELMISARTAN
     Indication: Hypertension
  3. TELMISARTAN [Suspect]
     Active Substance: TELMISARTAN
     Dosage: 80 MG, QD (ONCE DAILY IN THE MORNING)

REACTIONS (5)
  - Keratoacanthoma [Recovering/Resolving]
  - Skin lesion [Recovering/Resolving]
  - Neoplasm skin [Recovering/Resolving]
  - Dermal cyst [Recovering/Resolving]
  - Actinic keratosis [Recovering/Resolving]
